FAERS Safety Report 4611092-9 (Version None)
Quarter: 2005Q2

REPORT INFORMATION
  Report Type: 
  Country: None (occurrence: None)
  Receive Date: 20050314
  Receipt Date: 20041108
  Transmission Date: 20051028
  Serious: Yes (Hospitalization)
  Sender: FDA-Public Use
  Company Number: USA040876694

PATIENT
  Age: 79 Year
  Sex: Male
  Weight: 85 kg

DRUGS (10)
  1. GEMZAR [Suspect]
     Indication: LUNG NEOPLASM MALIGNANT
     Dosage: 2060 MG
     Dates: start: 20040817
  2. ASPIRIN [Concomitant]
  3. DILTIAZEM [Concomitant]
  4. LESCOL [Concomitant]
  5. ATROVENT [Concomitant]
  6. SAW PALMETTO [Concomitant]
  7. MULTI-VITAMIN [Concomitant]
  8. PRANDIN [Concomitant]
  9. SEREVENT [Concomitant]
  10. NEUPOGEN [Concomitant]

REACTIONS (6)
  - CHILLS [None]
  - DEMENTIA [None]
  - HAEMOGLOBIN DECREASED [None]
  - PYREXIA [None]
  - RED BLOOD CELL COUNT DECREASED [None]
  - WHITE BLOOD CELL COUNT DECREASED [None]
